FAERS Safety Report 9541978 (Version 1)
Quarter: 2013Q3

REPORT INFORMATION
  Report Type: Spontaneous
  Country: US (occurrence: US)
  Receive Date: 20130923
  Receipt Date: 20130923
  Transmission Date: 20140515
  Serious: Yes (Other)
  Sender: FDA-Public Use
  Company Number: US-SUN PHARMACEUTICAL INDUSTRIES LTD-2013SUN04704

PATIENT
  Sex: 0

DRUGS (4)
  1. TOPIRAMATE TABS 200MG [Suspect]
     Indication: CONVULSION
     Dosage: 25 MG, QD AT BEDTIME
     Route: 048
     Dates: start: 201301
  2. TOPIRAMATE TABS 200MG [Suspect]
     Indication: MIGRAINE
     Dosage: 200 MG, QD
     Route: 048
  3. CARBAMAZEPINE TABLETS USP, 200 MG [Suspect]
     Indication: CONVULSION
     Dosage: 400 MG, BID
     Route: 065
     Dates: start: 201210
  4. CARBAMAZEPINE TABLETS USP, 200 MG [Suspect]
     Indication: MIGRAINE

REACTIONS (12)
  - Cervical polyp [Unknown]
  - Cervix haemorrhage uterine [Unknown]
  - Haemorrhoids [Unknown]
  - Haemorrhoidal haemorrhage [Unknown]
  - Blood pressure increased [Unknown]
  - Gastrointestinal pain [Unknown]
  - Blood creatine phosphokinase increased [Unknown]
  - Menorrhagia [Unknown]
  - Myalgia [Unknown]
  - Arthralgia [Unknown]
  - Vision blurred [Unknown]
  - Muscle spasms [Unknown]
